FAERS Safety Report 5147383-5 (Version None)
Quarter: 2006Q4

REPORT INFORMATION
  Report Type: 
  Country: None (occurrence: None)
  Receive Date: 20061106
  Receipt Date: 20061030
  Transmission Date: 20070319
  Serious: Yes (Other)
  Sender: FDA-Public Use
  Company Number: 2006-08-0736

PATIENT
  Age: 67 Year
  Sex: Female
  Weight: 60.782 kg

DRUGS (7)
  1. PEG-INTRON [Suspect]
     Indication: HEPATITIS C
     Dosage: 80 MCG; QW; SC
     Route: 058
     Dates: start: 20060501
  2. REBETOL [Suspect]
     Indication: HEPATITIS C
     Dosage: SEE IMAGE
     Route: 048
     Dates: start: 20060501
  3. REBETOL [Suspect]
     Indication: HEPATITIS C
     Dosage: SEE IMAGE
     Route: 048
     Dates: start: 20060501
  4. EFFEXOR [Concomitant]
  5. ESTRATEST [Concomitant]
  6. PROVERA [Concomitant]
  7. XANAX [Concomitant]

REACTIONS (20)
  - ABDOMINAL DISTENSION [None]
  - ANHEDONIA [None]
  - ANXIETY [None]
  - ASTHENIA [None]
  - CHEST PAIN [None]
  - DECREASED APPETITE [None]
  - DIZZINESS [None]
  - DYSGEUSIA [None]
  - DYSSTASIA [None]
  - FLUID INTAKE REDUCED [None]
  - HYPOAESTHESIA ORAL [None]
  - HYPOTENSION [None]
  - NAUSEA [None]
  - ORAL INTAKE REDUCED [None]
  - PARANOIA [None]
  - PRESYNCOPE [None]
  - RESTLESSNESS [None]
  - SKIN DISORDER [None]
  - WEIGHT DECREASED [None]
  - WHITE BLOOD CELL COUNT DECREASED [None]
